FAERS Safety Report 23675775 (Version 2)
Quarter: 2024Q3

REPORT INFORMATION
  Report Type: Spontaneous
  Country: US (occurrence: US)
  Receive Date: 20240327
  Receipt Date: 20240723
  Transmission Date: 20241016
  Serious: Yes (Other)
  Sender: TEVA
  Company Number: US-TEVA-VS-3166982

PATIENT
  Sex: Female

DRUGS (1)
  1. COPAXONE [Suspect]
     Active Substance: GLATIRAMER ACETATE
     Indication: Multiple sclerosis
     Dosage: INJECTION (PFS)
     Route: 058

REACTIONS (11)
  - Angina pectoris [Unknown]
  - Injection site pain [Not Recovered/Not Resolved]
  - Vertigo [Unknown]
  - Dizziness [Unknown]
  - Gait inability [Unknown]
  - Back pain [Unknown]
  - Pain in extremity [Unknown]
  - Tremor [Unknown]
  - Chills [Unknown]
  - Chest pain [Unknown]
  - Flushing [Unknown]
